FAERS Safety Report 22255116 (Version 3)
Quarter: 2023Q2

REPORT INFORMATION
  Report Type: Spontaneous
  Country: US (occurrence: US)
  Receive Date: 20230426
  Receipt Date: 20230622
  Transmission Date: 20230722
  Serious: Yes (Death, Hospitalization, Other)
  Sender: FDA-Public Use
  Company Number: US-SANOFI-01584624

PATIENT
  Age: 91 Year
  Sex: Female

DRUGS (3)
  1. RENVELA [Suspect]
     Active Substance: SEVELAMER CARBONATE
     Indication: End stage renal disease
     Dosage: 2.4 G, TID
     Route: 048
  2. LEVOTHYROXINE SODIUM [Suspect]
     Active Substance: LEVOTHYROXINE SODIUM
     Indication: Goitre
     Dosage: 112 UG, QD
     Route: 065
  3. LEVOTHYROXINE SODIUM [Suspect]
     Active Substance: LEVOTHYROXINE SODIUM
     Dosage: 125 UG, QD

REACTIONS (8)
  - Hypoglycaemia [Fatal]
  - Thyroid hormones decreased [Fatal]
  - Unresponsive to stimuli [Fatal]
  - Fatigue [Fatal]
  - Drug interaction [Fatal]
  - COVID-19 pneumonia [Recovering/Resolving]
  - Blood phosphorus decreased [Unknown]
  - Weight decreased [Unknown]

NARRATIVE: CASE EVENT DATE: 20220918
